FAERS Safety Report 8030537-8 (Version None)
Quarter: 2012Q1

REPORT INFORMATION
  Report Type: 
  Country: None (occurrence: None)
  Receive Date: 20120105
  Receipt Date: 20111222
  Transmission Date: 20120608
  Serious: Yes (Disabling, Congenital Anomaly)
  Sender: FDA-Public Use
  Company Number: 216322(2)

PATIENT
  Age: 4 Week
  Sex: Male

DRUGS (1)
  1. INNOHEP [Suspect]
     Indication: FOETAL EXPOSURE TIMING UNSPECIFIED

REACTIONS (3)
  - LOWER LIMB FRACTURE [None]
  - CAESAREAN SECTION [None]
  - MATERNAL DRUGS AFFECTING FOETUS [None]
